FAERS Safety Report 17094145 (Version 1)
Quarter: 2019Q4

REPORT INFORMATION
  Report Type: Spontaneous
  Country: CA (occurrence: CA)
  Receive Date: 20191129
  Receipt Date: 20191129
  Transmission Date: 20200122
  Serious: Yes (Other)
  Sender: FDA-Public Use
  Company Number: NVSC2019CA045015

PATIENT
  Age: 7 Year
  Sex: Female

DRUGS (2)
  1. EFALEX FOCUS [Concomitant]
     Indication: ATTENTION DEFICIT/HYPERACTIVITY DISORDER
     Dosage: UNK
     Route: 065
     Dates: start: 2001
  2. METHYLPHENIDATE HYDROCHLORIDE. [Suspect]
     Active Substance: METHYLPHENIDATE HYDROCHLORIDE
     Indication: ATTENTION DEFICIT/HYPERACTIVITY DISORDER
     Dosage: 10 MG, QD
     Route: 048
     Dates: start: 200110, end: 20020307

REACTIONS (5)
  - Dry skin [Unknown]
  - Drug interaction [Unknown]
  - Tic [Recovering/Resolving]
  - Nightmare [Unknown]
  - Rash [Unknown]

NARRATIVE: CASE EVENT DATE: 20020307
